FAERS Safety Report 14566402 (Version 1)
Quarter: 2018Q1

REPORT INFORMATION
  Report Type: Spontaneous
  Country: IT (occurrence: IT)
  Receive Date: 20180223
  Receipt Date: 20180223
  Transmission Date: 20180509
  Serious: Yes (Other)
  Sender: FDA-Public Use
  Company Number: IT-AUROBINDO-AUR-APL-2018-009501

PATIENT
  Age: 76 Year
  Sex: Male

DRUGS (1)
  1. CLOPIDOGREL AUROBINDO [Suspect]
     Active Substance: CLOPIDOGREL BISULFATE
     Indication: MYOCARDIAL ISCHAEMIA
     Dosage: 75 MG, UNK
     Route: 048

REACTIONS (1)
  - Gynaecomastia [Recovering/Resolving]

NARRATIVE: CASE EVENT DATE: 20171101
